FAERS Safety Report 9310451 (Version 1)
Quarter: 2013Q2

REPORT INFORMATION
  Report Type: Spontaneous
  Country: US (occurrence: US)
  Receive Date: 20130527
  Receipt Date: 20130527
  Transmission Date: 20140414
  Serious: No
  Sender: FDA-Public Use
  Company Number: US-PFIZER INC-2013158828

PATIENT
  Age: 50 Year
  Sex: Male
  Weight: 97.51 kg

DRUGS (3)
  1. ADVIL [Suspect]
     Indication: HEADACHE
     Dosage: UNK, AS NEEDED
     Route: 048
  2. ADVIL [Suspect]
     Indication: NECK PAIN
  3. ASPIRIN [Concomitant]
     Dosage: UNK, 1X/DAY

REACTIONS (2)
  - Glossodynia [Unknown]
  - Paraesthesia oral [Unknown]
